FAERS Safety Report 17533667 (Version 1)
Quarter: 2020Q1

REPORT INFORMATION
  Report Type: Spontaneous
  Country: US (occurrence: US)
  Receive Date: 20200312
  Receipt Date: 20200312
  Transmission Date: 20200409
  Serious: Yes (Disabling)
  Sender: FDA-Public Use
  Company Number: None

PATIENT
  Age: 27 Year
  Sex: Male
  Weight: 78.75 kg

DRUGS (2)
  1. PAZEO [Concomitant]
     Active Substance: OLOPATADINE HYDROCHLORIDE
  2. MONTELUKAST SODIUM 10MG [Suspect]
     Active Substance: MONTELUKAST SODIUM
     Indication: SEASONAL ALLERGY
     Dosage: ?          QUANTITY:1 TABLET(S);?
     Route: 048
     Dates: start: 20190201, end: 20190601

REACTIONS (3)
  - Agitation [None]
  - Abnormal dreams [None]
  - Depression [None]

NARRATIVE: CASE EVENT DATE: 20191201
